FAERS Safety Report 8025086-7 (Version None)
Quarter: 2012Q1

REPORT INFORMATION
  Report Type: 
  Country: None (occurrence: None)
  Receive Date: 20120105
  Receipt Date: 20111229
  Transmission Date: 20120608
  Serious: Yes (Other)
  Sender: FDA-Public Use
  Company Number: US-BAYER-2011-106897

PATIENT
  Age: 37 Year
  Sex: Female
  Weight: 66.667 kg

DRUGS (26)
  1. CLARITHROMYCIN [Concomitant]
     Indication: INFECTION
     Dosage: UNK
     Dates: start: 20010101, end: 20110101
  2. VALTREX [Concomitant]
     Indication: HEPATITIS INFECTIOUS MONONUCLEOSIS
     Dosage: UNK
     Dates: start: 20070101
  3. ROBAXIN [Concomitant]
     Indication: PAIN
     Dosage: UNK
     Dates: start: 20070101
  4. VITAMIN D [Concomitant]
     Indication: SUPPLEMENTATION THERAPY
     Dosage: UNK
     Dates: start: 20070101
  5. FAMVIR [Concomitant]
     Indication: HEPATITIS INFECTIOUS MONONUCLEOSIS
     Dosage: UNK
     Dates: start: 20060101, end: 20080101
  6. YAZ [Suspect]
     Indication: CONTRACEPTION
     Dosage: UNK
     Dates: start: 20061201, end: 20080201
  7. ZOLOFT [Concomitant]
     Indication: DEPRESSION
     Dosage: UNK
     Dates: start: 20070101
  8. AMITRIPTYLINE HCL [Concomitant]
     Indication: DEPRESSION
     Dosage: UNK
     Dates: start: 20070101, end: 20110101
  9. GLUCOSAMINE SULFATE W/CHONDROITIN [Concomitant]
     Indication: SUPPLEMENTATION THERAPY
     Dosage: UNK
     Dates: start: 20020101
  10. MACROBID [Concomitant]
     Indication: INFECTION
     Dosage: UNK
     Dates: start: 20010101, end: 20110101
  11. SINGULAIR [Concomitant]
     Indication: ASTHMA
  12. ALBUTEROL [Concomitant]
     Dosage: UNK
     Dates: start: 20070101
  13. COQ10 [Concomitant]
     Indication: SUPPLEMENTATION THERAPY
     Dosage: UNK
     Dates: start: 20070101
  14. MULTI-VITAMIN [Concomitant]
     Indication: SUPPLEMENTATION THERAPY
     Dosage: UNK
     Dates: start: 20010101
  15. AZITHROMYCIN [Concomitant]
     Indication: INFECTION
     Dosage: UNK
     Dates: start: 20010101, end: 20110101
  16. MOBIC [Concomitant]
     Indication: PAIN
     Dosage: UNK
     Dates: start: 20010101, end: 20110101
  17. NYSTATIN [Concomitant]
     Indication: CANDIDIASIS
     Dosage: UNK
     Dates: start: 20070101, end: 20100101
  18. YAZ [Suspect]
     Dosage: UNK
     Dates: start: 20081101, end: 20100301
  19. IBUPROFEN [Concomitant]
     Indication: PAIN
     Dosage: UNK
     Dates: start: 20010101, end: 20110101
  20. VITAMIN B COMPLEX CAP [Concomitant]
     Indication: SUPPLEMENTATION THERAPY
     Dosage: UNK
     Dates: start: 20070101
  21. NAPROXEN [Concomitant]
     Indication: PAIN
     Dosage: UNK
     Dates: start: 20010101, end: 20110101
  22. CALCIUM ACETATE [Concomitant]
     Indication: SUPPLEMENTATION THERAPY
     Dosage: UNK
     Dates: start: 20070101
  23. CIPROFLOXACIN [Concomitant]
     Dosage: UNK
     Dates: start: 20010101, end: 20110101
  24. VITAMIN C [Concomitant]
     Indication: VITAMIN SUPPLEMENTATION
     Dosage: UNK
     Dates: start: 20010101
  25. SINGULAIR [Concomitant]
     Indication: MULTIPLE ALLERGIES
     Dosage: UNK
     Dates: start: 20010101
  26. ACIPHEX [Concomitant]
     Indication: GASTROOESOPHAGEAL REFLUX DISEASE
     Dosage: UNK
     Dates: start: 20060101

REACTIONS (7)
  - FATIGUE [None]
  - CARDIAC DISORDER [None]
  - GALLBLADDER DISORDER [None]
  - PAIN [None]
  - DYSPEPSIA [None]
  - CHOLELITHIASIS [None]
  - GASTROINTESTINAL DISORDER [None]
